FAERS Safety Report 6165747-8 (Version None)
Quarter: 2009Q2

REPORT INFORMATION
  Report Type: 
  Country: None (occurrence: None)
  Receive Date: 20090423
  Receipt Date: 20090417
  Transmission Date: 20091009
  Serious: Yes (Hospitalization)
  Sender: FDA-Public Use
  Company Number: BR-ASTRAZENECA-2009UW09752

PATIENT
  Age: 19 Year
  Sex: Male

DRUGS (8)
  1. OMEPRAZOLE [Suspect]
     Indication: OESOPHAGITIS
     Route: 048
     Dates: start: 20090101, end: 20090401
  2. OMEPRAZOLE [Suspect]
     Indication: GASTROOESOPHAGEAL REFLUX DISEASE
     Route: 048
     Dates: start: 20090101, end: 20090401
  3. OMEPRAZOLE [Suspect]
     Indication: DUODENITIS
     Route: 048
     Dates: start: 20090101, end: 20090401
  4. OMEPRAZOLE [Suspect]
     Indication: GASTRITIS
     Route: 048
     Dates: start: 20090101, end: 20090401
  5. NEXIUM [Concomitant]
     Indication: OESOPHAGITIS
     Route: 048
     Dates: start: 20081001, end: 20090101
  6. NEXIUM [Concomitant]
     Indication: GASTROOESOPHAGEAL REFLUX DISEASE
     Route: 048
     Dates: start: 20081001, end: 20090101
  7. NEXIUM [Concomitant]
     Indication: DUODENITIS
     Route: 048
     Dates: start: 20081001, end: 20090101
  8. NEXIUM [Concomitant]
     Indication: GASTRITIS
     Route: 048
     Dates: start: 20081001, end: 20090101

REACTIONS (4)
  - ACNE [None]
  - DIARRHOEA [None]
  - HYPERSENSITIVITY [None]
  - HYPERTRICHOSIS [None]
